FAERS Safety Report 5394582-3 (Version None)
Quarter: 2007Q3

REPORT INFORMATION
  Report Type: 
  Country: None (occurrence: None)
  Receive Date: 20070723
  Receipt Date: 20070711
  Transmission Date: 20080115
  Serious: Yes (Hospitalization)
  Sender: FDA-Public Use
  Company Number: US-SHR-US-2007-018343

PATIENT
  Age: 63 Year
  Sex: Female
  Weight: 79.365 kg

DRUGS (2)
  1. BETASERON [Suspect]
     Dosage: 4 MIU, EVERY 2D
     Route: 058
     Dates: start: 20070412, end: 20070501
  2. BETASERON [Suspect]
     Route: 058
     Dates: start: 20070506

REACTIONS (1)
  - APPENDICITIS [None]
